FAERS Safety Report 7101987-9 (Version None)
Quarter: 2010Q4

REPORT INFORMATION
  Report Type: 
  Country: None (occurrence: None)
  Receive Date: 20101115
  Receipt Date: 20101110
  Transmission Date: 20110411
  Serious: Yes (Hospitalization, Other)
  Sender: FDA-Public Use
  Company Number: US-ELI_LILLY_AND_COMPANY-US201005000620

PATIENT
  Sex: Male

DRUGS (1)
  1. BYETTA [Suspect]
     Dates: start: 20050701, end: 20080701

REACTIONS (2)
  - PANCREATITIS [None]
  - RENAL FAILURE ACUTE [None]
